FAERS Safety Report 4439926-1 (Version None)
Quarter: 2004Q3

REPORT INFORMATION
  Report Type: 
  Country: None (occurrence: None)
  Receive Date: 20040831
  Receipt Date: 20040818
  Transmission Date: 20050211
  Serious: Yes (Hospitalization)
  Sender: FDA-Public Use
  Company Number: 2004229493JP

PATIENT
  Age: 65 Year
  Sex: Male

DRUGS (4)
  1. EPIRUBICIN [Suspect]
     Indication: HEPATIC NEOPLASM
     Dosage: 40 MG, INTRA-ARTERIAL
     Route: 013
     Dates: start: 20010401, end: 20010401
  2. GELFOAM [Suspect]
     Indication: HEPATIC NEOPLASM
     Dates: start: 20010401, end: 20010401
  3. LIPIODOL ULTRA-FLUID (ETHIODIZED OIL) [Suspect]
     Indication: HEPATIC NEOPLASM
     Dosage: 3 ML, INTRA-ARTERIAL
     Route: 013
     Dates: start: 20010401, end: 20010401
  4. ETHANOL [Concomitant]

REACTIONS (11)
  - ABDOMINAL INJURY [None]
  - ALANINE AMINOTRANSFERASE INCREASED [None]
  - ASPARTATE AMINOTRANSFERASE INCREASED [None]
  - BILIARY TRACT DISORDER [None]
  - BLOOD LACTATE DEHYDROGENASE INCREASED [None]
  - CHOLANGIECTASIS ACQUIRED [None]
  - ESCHERICHIA SEPSIS [None]
  - HEPATIC INFARCTION [None]
  - PLEURAL EFFUSION [None]
  - PYREXIA [None]
  - SEPTIC SHOCK [None]
